FAERS Safety Report 4953295-X (Version None)
Quarter: 2006Q1

REPORT INFORMATION
  Report Type: 
  Country: None (occurrence: None)
  Receive Date: 20060324
  Receipt Date: 20060321
  Transmission Date: 20060701
  Serious: Yes (Death, Life-Threatening)
  Sender: FDA-Public Use
  Company Number: TR-BRISTOL-MYERS SQUIBB COMPANY-13324231

PATIENT
  Age: 59 Year
  Sex: Male

DRUGS (4)
  1. CETUXIMAB [Suspect]
     Indication: NON-SMALL CELL LUNG CANCER
     Route: 041
     Dates: start: 20050929
  2. CISPLATIN [Suspect]
     Indication: NON-SMALL CELL LUNG CANCER
     Route: 042
     Dates: start: 20050929
  3. VINORELBINE [Suspect]
     Indication: NON-SMALL CELL LUNG CANCER
     Route: 042
     Dates: start: 20050929
  4. ZOLEDRONIC ACID [Suspect]
     Indication: METASTASES TO BONE
     Route: 042
     Dates: start: 20051010, end: 20051010

REACTIONS (2)
  - HYPOCALCAEMIA [None]
  - NEUTROPENIC SEPSIS [None]
